FAERS Safety Report 12702167 (Version 1)
Quarter: 2016Q3

REPORT INFORMATION
  Report Type: Spontaneous
  Country: US (occurrence: US)
  Receive Date: 20160831
  Receipt Date: 20160831
  Transmission Date: 20161109
  Serious: Yes (Hospitalization, Other)
  Sender: FDA-Public Use
  Company Number: US-PFIZER INC-2016404513

PATIENT
  Age: 59 Year
  Sex: Male
  Weight: 76 kg

DRUGS (33)
  1. TACROLIMUS. [Concomitant]
     Active Substance: TACROLIMUS
     Dosage: 4 MG, 2X/DAY (1MG, 4 IN THE MORNING AND 4 AT NIGHT)
     Route: 048
     Dates: start: 20160728
  2. PANTOPRAZOLE [Concomitant]
     Active Substance: PANTOPRAZOLE SODIUM
     Indication: DYSPEPSIA
  3. VFEND [Suspect]
     Active Substance: VORICONAZOLE
     Indication: FUNGAL INFECTION
     Dosage: 200 MG, 2X/DAY
     Route: 048
     Dates: end: 20160728
  4. PREDNISONE. [Concomitant]
     Active Substance: PREDNISONE
     Indication: TRANSPLANT REJECTION
     Dosage: 10 MG, 2X/DAY (5MG, 2 TABLETS TWICE A DAY)
     Route: 048
     Dates: start: 201605
  5. VITAMIN D3 [Concomitant]
     Active Substance: CHOLECALCIFEROL
     Indication: ROUTINE HEALTH MAINTENANCE
     Dosage: 2000 IU, 2X/DAY (1000IU, TABLET, 2 IN THE MORNING AND 2 AT NIGHT)
     Route: 048
     Dates: start: 201605
  6. OXYCODONE [Concomitant]
     Active Substance: OXYCODONE
     Indication: PAIN
     Dosage: 5 MG, AS NEEDED
     Route: 048
     Dates: start: 201605
  7. WELLBUTRIN XL [Concomitant]
     Active Substance: BUPROPION HYDROCHLORIDE
     Indication: DEPRESSION
  8. TACROLIMUS. [Concomitant]
     Active Substance: TACROLIMUS
     Indication: TRANSPLANT REJECTION
     Dosage: 2.5 MG, DAILY (0.5 MG CAPSULE, 3 CAPSULES IN THE MORNING AND 2 CAPSULES IN EVENING)
     Route: 048
     Dates: start: 201605, end: 20160728
  9. VALCYTE [Concomitant]
     Active Substance: VALGANCICLOVIR HYDROCHLORIDE
     Dosage: 2 TABLETS ONCE A DAY
     Route: 048
  10. CALCIUM [Concomitant]
     Active Substance: CALCIUM
     Dosage: 1000 MG, 2X/DAY (ONE TABLET TWICE A DAY)
     Route: 048
  11. SERTRALINE [Concomitant]
     Active Substance: SERTRALINE HYDROCHLORIDE
     Indication: AFFECTIVE DISORDER
     Dosage: 200 MG, 1X/DAY (100MG, TWO TABLETS, ONCE A DAY)
     Route: 048
  12. WELLBUTRIN SR [Concomitant]
     Active Substance: BUPROPION HYDROCHLORIDE
     Indication: AFFECTIVE DISORDER
     Dosage: 150 MG, 1X/DAY
     Route: 048
  13. WELLBUTRIN SR [Concomitant]
     Active Substance: BUPROPION HYDROCHLORIDE
     Indication: DEPRESSION
  14. DOXYCLINE MONO [Concomitant]
     Indication: BACTERIAL INFECTION
     Dosage: 100 MG, 2X/DAY (ONCE IN THE MORNING AND ONCE AT NIGHT)
     Route: 048
     Dates: start: 20160718, end: 20160731
  15. MYCOPHENOLATE MOFETIL. [Concomitant]
     Active Substance: MYCOPHENOLATE MOFETIL
     Indication: TRANSPLANT REJECTION
     Dosage: 500 MG, 2X/DAY (ONCE IN THE MORNING AND ONCE AT NIGHT)
     Route: 048
     Dates: start: 201605, end: 20160728
  16. PREDNISONE. [Concomitant]
     Active Substance: PREDNISONE
     Dosage: 10 MG, 1X/DAY (2 TABLETS ONCE A DAY)
     Route: 048
  17. DAPSONE. [Concomitant]
     Active Substance: DAPSONE
     Indication: BACTERIAL INFECTION
     Dosage: UNK UNK, 1X/DAY (100MG TABLETS, ONCE A DAY)
     Route: 048
     Dates: start: 201605
  18. FLUDROCORTISONE ACETATE. [Concomitant]
     Active Substance: FLUDROCORTISONE ACETATE
     Dosage: 0.1 MG, DAILY
     Route: 048
  19. PANTOPRAZOLE [Concomitant]
     Active Substance: PANTOPRAZOLE SODIUM
     Indication: GASTRIC ULCER
     Dosage: 40 MG, 1X/DAY
     Route: 048
  20. MAGNESIUM [Concomitant]
     Active Substance: MAGNESIUM
     Dosage: 800 MG, DAILY (2 A DAY)
     Route: 048
  21. WELLBUTRIN XL [Concomitant]
     Active Substance: BUPROPION HYDROCHLORIDE
     Indication: AFFECTIVE DISORDER
     Dosage: 150 MG, 1X/DAY
  22. MUCINEX [Concomitant]
     Active Substance: GUAIFENESIN
     Indication: COUGH
     Dosage: 600 MG, AS NEEDED
     Route: 048
     Dates: start: 201606
  23. MYCOPHENOLATE MOFETIL. [Concomitant]
     Active Substance: MYCOPHENOLATE MOFETIL
     Dosage: 500 MG, 4X/DAY
     Route: 048
     Dates: start: 20160728
  24. PRAVACHOL [Concomitant]
     Active Substance: PRAVASTATIN SODIUM
     Indication: PROPHYLAXIS
     Dosage: 40 MG, 1X/DAY
     Route: 048
     Dates: start: 201605
  25. FLUDROCORTISONE ACETATE. [Concomitant]
     Active Substance: FLUDROCORTISONE ACETATE
     Indication: BLOOD POTASSIUM INCREASED
     Dosage: 0.1 MG, ALTERNATE DAY
     Route: 048
  26. MAGNESIUM [Concomitant]
     Active Substance: MAGNESIUM
     Indication: ROUTINE HEALTH MAINTENANCE
     Dosage: 1200 MG, DAILY (400MG, TABLET, 3 A DAY)
     Route: 048
  27. CALCIUM [Concomitant]
     Active Substance: CALCIUM
     Indication: ROUTINE HEALTH MAINTENANCE
     Dosage: 1000 MG, 2X/DAY
  28. VALCYTE [Concomitant]
     Active Substance: VALGANCICLOVIR HYDROCHLORIDE
     Indication: PROPHYLAXIS
     Dosage: 450 MG, 1X/DAY
     Route: 048
     Dates: start: 201605
  29. DRONABINOL. [Concomitant]
     Active Substance: DRONABINOL
     Indication: NAUSEA
     Dosage: 2.5 MG, AS NEEDED
     Route: 048
     Dates: start: 20160510, end: 20160607
  30. DRONABINOL. [Concomitant]
     Active Substance: DRONABINOL
     Indication: APPETITE DISORDER
  31. SERTRALINE [Concomitant]
     Active Substance: SERTRALINE HYDROCHLORIDE
     Indication: DEPRESSION
  32. ASPIRIN. [Concomitant]
     Active Substance: ASPIRIN
     Indication: THROMBOSIS PROPHYLAXIS
     Dosage: 81 MG, 1X/DAY
     Route: 048
  33. MUCINEX [Concomitant]
     Active Substance: GUAIFENESIN
     Indication: PRODUCTIVE COUGH

REACTIONS (6)
  - Visual field defect [Recovered/Resolved]
  - Generalised anxiety disorder [Recovering/Resolving]
  - Paranoia [Recovering/Resolving]
  - Pneumonia [Recovered/Resolved]
  - Rash [Recovering/Resolving]
  - Hallucination [Recovering/Resolving]

NARRATIVE: CASE EVENT DATE: 201605
